FAERS Safety Report 9537739 (Version 4)
Quarter: 2013Q4

REPORT INFORMATION
  Report Type: Spontaneous
  Country: JP (occurrence: JP)
  Receive Date: 20130919
  Receipt Date: 20131118
  Transmission Date: 20140711
  Serious: Yes (Hospitalization, Other)
  Sender: FDA-Public Use
  Company Number: JP-UCBSA-097706

PATIENT
  Age: 81 Year
  Sex: Male

DRUGS (3)
  1. CIMZIA [Suspect]
     Indication: RHEUMATOID ARTHRITIS
     Route: 058
     Dates: start: 20130530, end: 20130726
  2. SOLETON [Concomitant]
     Indication: RHEUMATOID ARTHRITIS
     Route: 048
     Dates: start: 2006
  3. ESOMEPRAZOLE MAGNESIUM HYDRATE [Concomitant]
     Indication: PROPHYLAXIS AGAINST GASTROINTESTINAL ULCER
     Route: 048
     Dates: start: 20130522

REACTIONS (1)
  - Pulmonary tuberculosis [Recovering/Resolving]
